FAERS Safety Report 24267707 (Version 1)
Quarter: 2024Q3

REPORT INFORMATION
  Report Type: Spontaneous
  Country: CN (occurrence: None)
  Receive Date: 20240830
  Receipt Date: 20240830
  Transmission Date: 20241017
  Serious: Yes (Other)
  Sender: ASTRAZENECA
  Company Number: 2024A194768

PATIENT
  Age: 21702 Day
  Sex: Female
  Weight: 48 kg

DRUGS (9)
  1. DAPAGLIFLOZIN [Suspect]
     Active Substance: DAPAGLIFLOZIN
     Indication: Type 2 diabetes mellitus
     Route: 048
     Dates: start: 20240712, end: 20240714
  2. DAPAGLIFLOZIN [Suspect]
     Active Substance: DAPAGLIFLOZIN
     Indication: Diabetic ketosis
     Route: 048
     Dates: start: 20240712, end: 20240714
  3. DAPAGLIFLOZIN [Suspect]
     Active Substance: DAPAGLIFLOZIN
     Indication: Blood glucose increased
     Route: 048
     Dates: start: 20240712, end: 20240714
  4. VOGLIBOSE [Concomitant]
     Active Substance: VOGLIBOSE
     Indication: Type 2 diabetes mellitus
     Route: 048
     Dates: start: 20240712, end: 20240721
  5. VOGLIBOSE [Concomitant]
     Active Substance: VOGLIBOSE
     Indication: Diabetic ketosis
     Route: 048
     Dates: start: 20240712, end: 20240721
  6. VOGLIBOSE [Concomitant]
     Active Substance: VOGLIBOSE
     Indication: Blood glucose increased
     Route: 048
     Dates: start: 20240712, end: 20240721
  7. CHANGXIULIN [Concomitant]
     Indication: Type 2 diabetes mellitus
     Dosage: 8 UNITS ONCE A NIGHT
     Route: 059
     Dates: start: 20240712, end: 20240721
  8. CHANGXIULIN [Concomitant]
     Indication: Diabetic ketosis
     Dosage: 8 UNITS ONCE A NIGHT
     Route: 059
     Dates: start: 20240712, end: 20240721
  9. CHANGXIULIN [Concomitant]
     Indication: Blood glucose increased
     Dosage: 8 UNITS ONCE A NIGHT
     Route: 059
     Dates: start: 20240712, end: 20240721

REACTIONS (1)
  - Urine ketone body present [Recovered/Resolved]

NARRATIVE: CASE EVENT DATE: 20240713
